FAERS Safety Report 8609596-7 (Version None)
Quarter: 2012Q3

REPORT INFORMATION
  Report Type: 
  Country: None (occurrence: None)
  Receive Date: 20120810
  Receipt Date: 20120810
  Transmission Date: 20120928
  Serious: No
  Sender: FDA-Public Use
  Company Number: None

PATIENT
  Age: 34 Year
  Sex: Male

DRUGS (2)
  1. RISPERDAL [Suspect]
     Dosage: 4 MG DAILY PO
     Route: 048
  2. ZOLOFT [Suspect]
     Dosage: 50 MG DAILY PO
     Route: 048

REACTIONS (2)
  - PENILE SIZE REDUCED [None]
  - ERECTILE DYSFUNCTION [None]
